FAERS Safety Report 4604292-5 (Version None)
Quarter: 2005Q1

REPORT INFORMATION
  Report Type: 
  Country: None (occurrence: None)
  Receive Date: 20050310
  Receipt Date: 20050304
  Transmission Date: 20050727
  Serious: Yes (Death, Other)
  Sender: FDA-Public Use
  Company Number: DE-ABBOTT-05P-062-0292857-00

PATIENT
  Age: 37 Year
  Sex: Male

DRUGS (4)
  1. KALETRA [Suspect]
     Indication: HIV INFECTION
     Dosage: NOT REPORTED
  2. INDINAVIR [Suspect]
     Indication: HIV INFECTION
     Dosage: NOT REPORTED
  3. LAMIVUDINE [Suspect]
     Indication: HIV INFECTION
  4. TENOFOVIR-DF [Suspect]
     Indication: HIV INFECTION

REACTIONS (7)
  - ANGIOCENTRIC LYMPHOMA [None]
  - ASTHENIA [None]
  - BRAIN STEM SYNDROME [None]
  - CONVULSION [None]
  - GENERAL PHYSICAL HEALTH DETERIORATION [None]
  - HEADACHE [None]
  - IMMUNE RECONSTITUTION SYNDROME [None]
